FAERS Safety Report 16477279 (Version 1)
Quarter: 2019Q2

REPORT INFORMATION
  Report Type: Spontaneous
  Country: DE (occurrence: DE)
  Receive Date: 20190626
  Receipt Date: 20190626
  Transmission Date: 20190711
  Serious: Yes (Hospitalization)
  Sender: FDA-Public Use
  Company Number: DE-TEVA-2019-DE-1068544

PATIENT
  Age: 62 Year
  Sex: Female

DRUGS (4)
  1. CIPROFLOXACIN 500 [Suspect]
     Active Substance: CIPROFLOXACIN
     Indication: STAPHYLOCOCCAL INFECTION
     Dosage: TAKE 2-3 WEEKS
     Route: 048
     Dates: start: 2016
  2. CIPROFLOXACIN 500 [Suspect]
     Active Substance: CIPROFLOXACIN
     Dosage: EINNAHME 2-3 WOCHEN LANG
     Route: 048
     Dates: start: 2017
  3. CIPROFLOXACIN 500 [Suspect]
     Active Substance: CIPROFLOXACIN
     Dosage: EINNAHME 2-3 WOCHEN LANG
     Route: 048
     Dates: start: 2018
  4. CIPROFLOXACIN 500 [Suspect]
     Active Substance: CIPROFLOXACIN
     Dosage: EINNAHME 2-3 WOCHEN LANG
     Route: 048
     Dates: start: 2015

REACTIONS (9)
  - Tendon discomfort [Recovered/Resolved with Sequelae]
  - Wheelchair user [Not Recovered/Not Resolved]
  - Dysgeusia [Recovered/Resolved with Sequelae]
  - Skin discomfort [Recovered/Resolved with Sequelae]
  - Dyspepsia [Recovered/Resolved with Sequelae]
  - Dizziness [Recovered/Resolved with Sequelae]
  - Gait disturbance [Recovered/Resolved with Sequelae]
  - Impaired work ability [Recovered/Resolved with Sequelae]
  - Joint swelling [Recovered/Resolved with Sequelae]

NARRATIVE: CASE EVENT DATE: 2015
